FAERS Safety Report 8267079-0 (Version None)
Quarter: 2012Q2

REPORT INFORMATION
  Report Type: 
  Country: None (occurrence: None)
  Receive Date: 20120409
  Receipt Date: 20120328
  Transmission Date: 20120825
  Serious: Yes (Hospitalization)
  Sender: FDA-Public Use
  Company Number: US-ELI_LILLY_AND_COMPANY-US201202007413

PATIENT
  Sex: Female
  Weight: 56.2 kg

DRUGS (10)
  1. MECLIZINE [Concomitant]
     Dosage: UNK, PRN
  2. TUMS                               /00193601/ [Concomitant]
     Indication: BLOOD CALCIUM ABNORMAL
  3. VITAMIN D [Concomitant]
     Dosage: 4000 IU, QD
  4. PRAVASTATIN [Concomitant]
  5. GLUCOSAMINE + CHONDROITIN [Concomitant]
     Dosage: UNK, QD
  6. FORTEO [Suspect]
     Dosage: 20 UG, QD
  7. SYNTHROID [Concomitant]
     Dosage: UNK, QD
  8. CLORAZEPATE DIPOTASSIUM [Concomitant]
     Dosage: UNK, PRN
  9. FORTEO [Suspect]
     Indication: OSTEOPOROSIS
     Dosage: 20 UG, QD
     Dates: start: 20111001
  10. VITAMINS NOS [Concomitant]
     Dosage: UNK, QD

REACTIONS (2)
  - COMPLICATED MIGRAINE [None]
  - SPEECH DISORDER [None]
